FAERS Safety Report 4809070-X (Version None)
Quarter: 2005Q4

REPORT INFORMATION
  Report Type: 
  Country: None (occurrence: None)
  Receive Date: 20051021
  Receipt Date: 20040617
  Transmission Date: 20060501
  Serious: No
  Sender: FDA-Public Use
  Company Number: GBS040615129

PATIENT
  Age: 40 Year
  Sex: Male

DRUGS (4)
  1. OLANZAPINE [Suspect]
     Indication: SCHIZOPHRENIA
     Dosage: 20 MG
     Dates: start: 20000101
  2. TEMAZEPAM [Concomitant]
  3. LORAZEPAM [Concomitant]
  4. PINDOLOL [Concomitant]

REACTIONS (1)
  - NEUTROPENIA [None]
